FAERS Safety Report 10412303 (Version 1)
Quarter: 2014Q2

REPORT INFORMATION
  Report Type: Spontaneous
  Country: US (occurrence: None)
  Receive Date: 20140604
  Receipt Date: 20140604
  Transmission Date: 20141212
  Serious: Yes (Hospitalization)
  Sender: FDA-Public Use
  Company Number: 20130222VANCO3978

PATIENT
  Sex: Female

DRUGS (1)
  1. VANCOCIN [Suspect]
     Indication: CLOSTRIDIUM DIFFICILE INFECTION

REACTIONS (1)
  - Drug ineffective [None]
